FAERS Safety Report 6843028-4 (Version None)
Quarter: 2010Q3

REPORT INFORMATION
  Report Type: 
  Country: None (occurrence: None)
  Receive Date: 20100709
  Receipt Date: 20100628
  Transmission Date: 20110219
  Serious: Yes (Hospitalization)
  Sender: FDA-Public Use
  Company Number: 7009392

PATIENT
  Sex: Female

DRUGS (2)
  1. REBIF [Suspect]
     Dosage: 22 MCG
  2. HEPARIN [Concomitant]

REACTIONS (1)
  - KNEE ARTHROPLASTY [None]
